FAERS Safety Report 4952108-X (Version None)
Quarter: 2006Q1

REPORT INFORMATION
  Report Type: 
  Country: None (occurrence: None)
  Receive Date: 20060127
  Receipt Date: 20050510
  Transmission Date: 20060701
  Serious: Yes (Death)
  Sender: FDA-Public Use
  Company Number: 05-05-0836

PATIENT
  Age: 63 Year
  Sex: Female

DRUGS (6)
  1. CLOZAPINE [Suspect]
     Dosage: 25-60MG QD, ORAL
     Route: 048
     Dates: start: 20000401, end: 20050401
  2. BENZTROPINE MESYLATE (BENZATROPINE MESILATE) (TABLETS) [Concomitant]
  3. LACTULOSE (LACTULOSE) (SYRUP) [Concomitant]
  4. RISPERDAL [Concomitant]
  5. SYNTHROID (LEVOTHYROXINE SODIUM) (TABLETS) [Concomitant]
  6. VALPROIC ACID (VALPROIC ACID) (CAPSULES) [Concomitant]

REACTIONS (1)
  - UNEVALUABLE EVENT [None]
